FAERS Safety Report 6456429-3 (Version None)
Quarter: 2009Q4

REPORT INFORMATION
  Report Type: 
  Country: None (occurrence: None)
  Receive Date: 20091125
  Receipt Date: 20091116
  Transmission Date: 20100525
  Serious: Yes (Hospitalization, Other)
  Sender: FDA-Public Use
  Company Number: PHHY2009JP48269

PATIENT
  Age: 71 Year
  Sex: Female

DRUGS (3)
  1. ZOMETA [Suspect]
     Indication: METASTASES TO BONE
     Dosage: 4MG PER ADMINISTRATION
     Route: 042
     Dates: start: 20081001, end: 20091001
  2. ALIMTA [Concomitant]
  3. FOLIC ACID [Concomitant]

REACTIONS (5)
  - CONCOMITANT DISEASE AGGRAVATED [None]
  - DISCOMFORT [None]
  - JAW DISORDER [None]
  - OSTEONECROSIS [None]
  - TOOTHACHE [None]
